FAERS Safety Report 5251824-2 (Version None)
Quarter: 2007Q1

REPORT INFORMATION
  Report Type: 
  Country: None (occurrence: None)
  Receive Date: 20070228
  Receipt Date: 20070220
  Transmission Date: 20070707
  Serious: No
  Sender: FDA-Public Use
  Company Number: CA-BOEHRINGER INGELHEIM GMBH, GERMANY-2007-CN-00038CN

PATIENT
  Sex: Male

DRUGS (7)
  1. SPIRIVA [Suspect]
     Indication: CHRONIC OBSTRUCTIVE PULMONARY DISEASE
     Dates: start: 20061213, end: 20061229
  2. ASPIRIN [Concomitant]
     Indication: MYOCARDIAL ISCHAEMIA
  3. ACEBUTOLOL [Concomitant]
     Indication: MYOCARDIAL ISCHAEMIA
  4. PLAVIX [Concomitant]
     Indication: MYOCARDIAL ISCHAEMIA
  5. ALTACE [Concomitant]
     Indication: MYOCARDIAL ISCHAEMIA
  6. CARDIAZEM [Concomitant]
     Indication: MYOCARDIAL ISCHAEMIA
  7. LOSEC [Concomitant]
     Indication: MYOCARDIAL ISCHAEMIA

REACTIONS (1)
  - HYPOACUSIS [None]
